FAERS Safety Report 6630800-9 (Version None)
Quarter: 2010Q1

REPORT INFORMATION
  Report Type: 
  Country: None (occurrence: None)
  Receive Date: 20100310
  Receipt Date: 20100310
  Transmission Date: 20100710
  Serious: Yes (Other)
  Sender: FDA-Public Use
  Company Number: None

PATIENT
  Age: 73 Year
  Sex: Female
  Weight: 61.4 kg

DRUGS (13)
  1. NITROFURANTOIN (MONOHYDRATE/MACROCRYSTALS) [Suspect]
     Indication: URINARY TRACT INFECTION
     Dosage: 100 MG EVERY 12 HOURS 047
     Dates: start: 20100225, end: 20100226
  2. SYNTHROID [Concomitant]
  3. ASASCOL [Concomitant]
  4. ACIPHEX [Concomitant]
  5. METOPROLOL TARTRATE [Concomitant]
  6. MICARDIS [Concomitant]
  7. AMLODIPINE BESYLATE [Concomitant]
  8. CLARINEX [Concomitant]
  9. PREMARIN [Concomitant]
  10. ECOTRIN [Concomitant]
  11. CITRACAL [Concomitant]
  12. D VITAMIN/630 CALCIUM [Concomitant]
  13. CENTRUM SILVER VITAMIN [Concomitant]

REACTIONS (8)
  - ASTHENIA [None]
  - DECREASED APPETITE [None]
  - DIARRHOEA [None]
  - FLUSHING [None]
  - HEADACHE [None]
  - NAUSEA [None]
  - PAIN [None]
  - PYREXIA [None]
